FAERS Safety Report 5217187-3 (Version None)
Quarter: 2007Q1

REPORT INFORMATION
  Report Type: 
  Country: None (occurrence: None)
  Receive Date: 20070122
  Receipt Date: 20070122
  Transmission Date: 20070707
  Serious: Yes (Hospitalization)
  Sender: FDA-Public Use
  Company Number: None

PATIENT
  Sex: Female
  Weight: 127.0072 kg

DRUGS (11)
  1. ARANESP [Suspect]
     Indication: ANAEMIA
     Dosage: 200 MCG WEEKLY SQ
     Route: 058
     Dates: start: 20061013, end: 20061122
  2. VANCOMYCIN [Concomitant]
  3. LEVAQUIN [Concomitant]
  4. PRIMAXIN [Concomitant]
  5. LASIX [Concomitant]
  6. BIPAP [Concomitant]
  7. INSULIN [Concomitant]
  8. LANTUS [Concomitant]
  9. SINGULAIR [Concomitant]
  10. NEURONTIN [Concomitant]
  11. CHEMO (CHOP)+ RITUXAN [Concomitant]

REACTIONS (3)
  - CELLULITIS [None]
  - SKIN ULCER [None]
  - WOUND SECRETION [None]
